FAERS Safety Report 5791176-2 (Version None)
Quarter: 2008Q2

REPORT INFORMATION
  Report Type: 
  Country: None (occurrence: None)
  Receive Date: 20080626
  Receipt Date: 20080508
  Transmission Date: 20081010
  Serious: No
  Sender: FDA-Public Use
  Company Number: A0712352A

PATIENT
  Age: 29 Year
  Sex: Female

DRUGS (1)
  1. ALLI [Suspect]

REACTIONS (6)
  - ABDOMINAL PAIN UPPER [None]
  - FLATULENCE [None]
  - FREQUENT BOWEL MOVEMENTS [None]
  - GASTRIC DISORDER [None]
  - GASTROINTESTINAL SOUNDS ABNORMAL [None]
  - RECTAL DISCHARGE [None]
